FAERS Safety Report 25444179 (Version 1)
Quarter: 2025Q2

REPORT INFORMATION
  Report Type: Spontaneous
  Country: GB (occurrence: GB)
  Receive Date: 20250617
  Receipt Date: 20250617
  Transmission Date: 20250717
  Serious: Yes (Other)
  Sender: ORGANON
  Company Number: None

PATIENT
  Age: 85 Year
  Sex: Female
  Weight: 53 kg

DRUGS (2)
  1. ALENDRONATE SODIUM [Suspect]
     Active Substance: ALENDRONATE SODIUM
     Indication: Adverse drug reaction
     Dosage: 70MG ONCE A WEEK
     Dates: start: 20200320
  2. ALENDRONATE SODIUM [Suspect]
     Active Substance: ALENDRONATE SODIUM
     Dosage: 70MG ONCE A WEEK
     Dates: start: 20200320

REACTIONS (3)
  - Ear infection bacterial [Recovered/Resolved]
  - Otorrhoea [Recovered/Resolved]
  - Bone lesion [Recovered/Resolved]

NARRATIVE: CASE EVENT DATE: 20221007
